FAERS Safety Report 19948489 (Version 3)
Quarter: 2021Q4

REPORT INFORMATION
  Report Type: Spontaneous
  Country: US (occurrence: US)
  Receive Date: 20211012
  Receipt Date: 20211229
  Transmission Date: 20220303
  Serious: Yes (Hospitalization)
  Sender: FDA-Public Use
  Company Number: US-BIOGEN-2021BI01057061

PATIENT
  Age: 24 Year
  Sex: Male

DRUGS (2)
  1. SPINRAZA [Suspect]
     Active Substance: NUSINERSEN
     Indication: Spinal muscular atrophy
     Route: 065
     Dates: start: 20191216, end: 20200228
  2. SPINRAZA [Suspect]
     Active Substance: NUSINERSEN
     Dosage: A MAINTENANCE DOSE (12MG/5ML) SHOULD BE ADMINISTERED ONCE EVERY 4 MONTHS
     Route: 037

REACTIONS (1)
  - Platelet count decreased [Unknown]

NARRATIVE: CASE EVENT DATE: 20211005
